FAERS Safety Report 21039364 (Version 2)
Quarter: 2022Q3

REPORT INFORMATION
  Report Type: Spontaneous
  Country: CH (occurrence: CH)
  Receive Date: 20220704
  Receipt Date: 20220705
  Transmission Date: 20221027
  Serious: Yes (Other)
  Sender: FDA-Public Use
  Company Number: CH-NOVARTISPH-NVSC2022CH144083

PATIENT
  Age: 66 Year
  Sex: Male

DRUGS (2)
  1. AZATHIOPRINE [Suspect]
     Active Substance: AZATHIOPRINE
     Indication: Colitis ulcerative
     Dosage: UNK
     Route: 065
  2. CARVEDILOL [Suspect]
     Active Substance: CARVEDILOL
     Indication: Product used for unknown indication
     Dosage: UNK
     Route: 065

REACTIONS (8)
  - Non-cirrhotic portal hypertension [Unknown]
  - Upper gastrointestinal haemorrhage [Unknown]
  - Nodular regenerative hyperplasia [Unknown]
  - Ascites [Unknown]
  - Hepatic encephalopathy [Unknown]
  - Varices oesophageal [Unknown]
  - Splenomegaly [Unknown]
  - Liver disorder [Unknown]
